FAERS Safety Report 7314821-9 (Version None)
Quarter: 2011Q1

REPORT INFORMATION
  Report Type: 
  Country: None (occurrence: None)
  Receive Date: 20110225
  Receipt Date: 20101221
  Transmission Date: 20110831
  Serious: No
  Sender: FDA-Public Use
  Company Number: US-MYLANLABS-2010S1023631

PATIENT
  Age: 23 Year
  Sex: Female

DRUGS (3)
  1. AMNESTEEM [Suspect]
     Indication: ACNE
     Dates: start: 20101025, end: 20101105
  2. LAXATIVE [Concomitant]
  3. TYLENOL [Suspect]
     Indication: NASOPHARYNGITIS
     Dates: start: 20101101

REACTIONS (1)
  - LIVER FUNCTION TEST ABNORMAL [None]
